FAERS Safety Report 8523703-6 (Version None)
Quarter: 2012Q3

REPORT INFORMATION
  Report Type: 
  Country: None (occurrence: None)
  Receive Date: 20120720
  Receipt Date: 20120711
  Transmission Date: 20120928
  Serious: Yes (Hospitalization, Other)
  Sender: FDA-Public Use
  Company Number: JP-JNJFOC-20120519931

PATIENT
  Age: 19 Month
  Sex: Male

DRUGS (5)
  1. REMICADE [Suspect]
     Indication: KAWASAKI'S DISEASE
     Route: 042
  2. ALL OTHER THERAPEUTIC PRODUCTS [Concomitant]
     Route: 065
  3. REMICADE [Suspect]
     Route: 042
  4. ALL OTHER THERAPEUTIC PRODUCTS [Concomitant]
     Indication: KAWASAKI'S DISEASE
     Route: 042
  5. HUMAN NORMAL IMMUNOGLOBULIN [Concomitant]
     Indication: KAWASAKI'S DISEASE
     Route: 042

REACTIONS (2)
  - RESPIRATORY SYNCYTIAL VIRUS BRONCHIOLITIS [None]
  - KAWASAKI'S DISEASE [None]
